FAERS Safety Report 8049917-X (Version None)
Quarter: 2012Q1

REPORT INFORMATION
  Report Type: 
  Country: None (occurrence: None)
  Receive Date: 20120117
  Receipt Date: 20111201
  Transmission Date: 20120608
  Serious: Yes (Hospitalization)
  Sender: FDA-Public Use
  Company Number: HN-SANOFI-AVENTIS-2011SA021045

PATIENT
  Age: 42 Year
  Sex: Female
  Weight: 72 kg

DRUGS (3)
  1. ARAVA [Suspect]
     Indication: RHEUMATOID ARTHRITIS
     Route: 048
     Dates: start: 20101004, end: 20110405
  2. AVAMIGRAN [Concomitant]
     Indication: MIGRAINE
     Route: 048
  3. KETOPROFEN [Concomitant]
     Indication: ARTHRITIS
     Route: 048

REACTIONS (3)
  - RENAL FAILURE ACUTE [None]
  - ANAEMIA [None]
  - ACUTE RESPIRATORY FAILURE [None]
